FAERS Safety Report 12473040 (Version 1)
Quarter: 2016Q2

REPORT INFORMATION
  Report Type: Spontaneous
  Country: US (occurrence: US)
  Receive Date: 20160616
  Receipt Date: 20160616
  Transmission Date: 20160815
  Serious: No
  Sender: FDA-Public Use
  Company Number: US-BAYER-2016-115614

PATIENT
  Age: 75 Year
  Sex: Female
  Weight: 88.88 kg

DRUGS (13)
  1. TRIANT-HC [Concomitant]
  2. RISPERIDONE. [Concomitant]
     Active Substance: RISPERIDONE
  3. MIRALAX [Suspect]
     Active Substance: POLYETHYLENE GLYCOL 3350
     Indication: DIARRHOEA
     Dosage: 1 DF, BID
     Dates: start: 20160609
  4. GABAPENTIN. [Concomitant]
     Active Substance: GABAPENTIN
  5. MIRABEGRON [Concomitant]
     Active Substance: MIRABEGRON
  6. PRAVASTATIN [Concomitant]
     Active Substance: PRAVASTATIN\PRAVASTATIN SODIUM
  7. CITALOPRAM [Concomitant]
     Active Substance: CITALOPRAM HYDROBROMIDE
  8. MIRALAX [Suspect]
     Active Substance: POLYETHYLENE GLYCOL 3350
     Indication: CONSTIPATION PROPHYLAXIS
  9. PRAMIPEXOLE. [Concomitant]
     Active Substance: PRAMIPEXOLE
  10. NITROFURANTOIN (MACROCRYSTALS) [Concomitant]
     Active Substance: NITROFURANTOIN
  11. LEVOTHYROXIN [Concomitant]
     Active Substance: LEVOTHYROXINE
  12. CICLOVEN [Concomitant]
  13. ALLOPURINOL. [Concomitant]
     Active Substance: ALLOPURINOL

REACTIONS (1)
  - Product use issue [None]

NARRATIVE: CASE EVENT DATE: 20160609
